FAERS Safety Report 8201118-8 (Version None)
Quarter: 2012Q1

REPORT INFORMATION
  Report Type: 
  Country: None (occurrence: None)
  Receive Date: 20120312
  Receipt Date: 20120306
  Transmission Date: 20120608
  Serious: Yes (Hospitalization)
  Sender: FDA-Public Use
  Company Number: DK-JNJFOC-20120304296

PATIENT
  Sex: Female
  Weight: 57 kg

DRUGS (3)
  1. CETIRIZINE HCL [Suspect]
     Indication: PRODUCT USED FOR UNKNOWN INDICATION
     Route: 048
     Dates: start: 20050328, end: 20050407
  2. BENADRYL [Suspect]
     Indication: HYPERSENSITIVITY
     Route: 048
     Dates: start: 20050310, end: 20050407
  3. CETIRIZINE HCL [Suspect]
     Route: 048

REACTIONS (3)
  - HALLUCINATION [None]
  - ANXIETY [None]
  - FATIGUE [None]
